FAERS Safety Report 8716231 (Version 2)
Quarter: 2013Q2

REPORT INFORMATION
  Report Type: Report from Study
  Country: JP (occurrence: JP)
  Receive Date: 20120810
  Receipt Date: 20130425
  Transmission Date: 20140414
  Serious: Yes (Life-Threatening)
  Sender: FDA-Public Use
  Company Number: JP-009507513-1207JPN007946

PATIENT
  Age: 59 Year
  Sex: Male
  Weight: 86 kg

DRUGS (11)
  1. PEGINTRON [Suspect]
     Indication: CHRONIC HEPATITIS C
     Dosage: 1.5 MICROGRAM PER KILOGRAM, QW, DAILY DOSE UNKNOWN
     Route: 058
     Dates: start: 20120626
  2. REBETOL [Suspect]
     Indication: CHRONIC HEPATITIS C
     Dosage: 1000 MG, QD
     Route: 048
     Dates: start: 20120626, end: 20120709
  3. REBETOL [Suspect]
     Dosage: 400 MG, QD
     Route: 048
     Dates: start: 20120710, end: 20120716
  4. REBETOL [Suspect]
     Dosage: 200 MG, QD
     Route: 048
     Dates: start: 20120717
  5. TELAVIC [Suspect]
     Indication: CHRONIC HEPATITIS C
     Dosage: 2250 MG, QD
     Route: 048
     Dates: start: 20120626, end: 20120718
  6. TELAVIC [Suspect]
     Dosage: 2000 MG, QD
     Route: 048
     Dates: start: 20120719, end: 20120719
  7. TELAVIC [Suspect]
     Dosage: 1500 MG, QD
     Route: 048
     Dates: start: 20120720
  8. AVAPRO [Suspect]
     Indication: HYPERTENSION
     Dosage: 100 MG, QD, FORMULATION: POR
     Route: 048
     Dates: end: 20120708
  9. URSO [Concomitant]
     Indication: CHRONIC HEPATITIS C
     Dosage: 900 MG, QD, FORMULATION: POR
     Route: 048
     Dates: end: 20120730
  10. FLUITRAN [Concomitant]
     Indication: HYPERTENSION
     Dosage: 0.5 MG, QD
     Route: 048
  11. DEPAS [Concomitant]
     Indication: PROPHYLAXIS
     Dosage: 1 MG, QD
     Route: 048
     Dates: start: 20120709, end: 20120730

REACTIONS (10)
  - Syncope [Recovered/Resolved]
  - Syncope [Recovered/Resolved]
  - Erythema [None]
  - Nausea [None]
  - Dizziness [None]
  - Palpitations [None]
  - Convulsion [None]
  - Loss of consciousness [None]
  - Hyperuricaemia [None]
  - Haemoglobin decreased [None]
